FAERS Safety Report 7197698-4 (Version None)
Quarter: 2010Q4

REPORT INFORMATION
  Report Type: 
  Country: None (occurrence: None)
  Receive Date: 20101227
  Receipt Date: 20101221
  Transmission Date: 20110411
  Serious: Yes (Life-Threatening, Disabling, Other)
  Sender: FDA-Public Use
  Company Number: JP-ASTRAZENECA-2010SE54631

PATIENT
  Age: 22692 Day
  Sex: Female
  Weight: 36 kg

DRUGS (17)
  1. IRESSA [Suspect]
     Indication: LUNG ADENOCARCINOMA
     Route: 048
     Dates: start: 20090314, end: 20090327
  2. IRESSA [Suspect]
     Route: 048
     Dates: start: 20090328, end: 20101110
  3. DEPAKENE [Suspect]
     Indication: CONVULSION
     Route: 048
     Dates: start: 20091202, end: 20101110
  4. OMEPRAL [Concomitant]
     Indication: GASTRIC ULCER
     Route: 048
     Dates: start: 20090213, end: 20091110
  5. ALFAROL [Concomitant]
     Indication: OSTEOPOROSIS
     Route: 048
     Dates: start: 20090213, end: 20101110
  6. LIPITOR [Concomitant]
     Indication: HYPERLIPIDAEMIA
     Route: 048
     Dates: start: 20090213, end: 20090602
  7. NAUZELIN [Concomitant]
     Route: 048
  8. DEPAS [Concomitant]
     Indication: BALANCE DISORDER
     Route: 048
     Dates: start: 20090221, end: 20101110
  9. HYPEN [Concomitant]
     Indication: PAIN
     Route: 048
     Dates: start: 20090202, end: 20091110
  10. DUROTEP [Concomitant]
     Indication: PAIN
     Route: 062
     Dates: start: 20090329, end: 20101110
  11. LASIX [Concomitant]
     Route: 048
  12. MOBIC [Concomitant]
     Indication: PAIN
     Route: 048
     Dates: start: 20090307, end: 20090530
  13. GASMOTIN [Concomitant]
     Indication: ABDOMINAL PAIN
     Route: 048
     Dates: start: 20090513, end: 20090602
  14. NOVAMIN [Concomitant]
     Indication: VOMITING
     Route: 048
     Dates: start: 20090202, end: 20090602
  15. MUCOSTA [Concomitant]
     Indication: GASTRITIS
     Route: 048
     Dates: start: 20090207, end: 20090602
  16. VESICARE [Concomitant]
     Route: 048
  17. HERCEPTIN [Concomitant]
     Indication: BREAST CANCER
     Route: 041
     Dates: start: 20090416, end: 20091210

REACTIONS (4)
  - ALTERED STATE OF CONSCIOUSNESS [None]
  - LIVER DISORDER [None]
  - PNEUMONIA [None]
  - RENAL FAILURE [None]
